FAERS Safety Report 15310625 (Version 2)
Quarter: 2018Q3

REPORT INFORMATION
  Report Type: Report from Study
  Country: MX (occurrence: MX)
  Receive Date: 20180823
  Receipt Date: 20180924
  Transmission Date: 20181010
  Serious: Yes (Other)
  Sender: FDA-Public Use
  Company Number: PHHY2018MX077119

PATIENT
  Sex: Female

DRUGS (4)
  1. INSULIN [Concomitant]
     Active Substance: INSULIN NOS
     Indication: DIABETES MELLITUS
     Dosage: 40 IU, QD ( 5 YEARS AGO)
     Route: 059
  2. EXFORGE HCT [Suspect]
     Active Substance: AMLODIPINE BESYLATE\HYDROCHLOROTHIAZIDE\VALSARTAN
     Indication: HYPERTENSION
     Dosage: 0.5 DF, (AMLODIPINE 5MG, VALSARTAN 160MG, HYDROCHLOROTHIAZIDE 12.5MG)
     Route: 048
  3. EXFORGE HCT [Suspect]
     Active Substance: AMLODIPINE BESYLATE\HYDROCHLOROTHIAZIDE\VALSARTAN
     Dosage: 1 DF (AMLODIPINE 5MG, VALSARTAN 160MG, HYDROCHLOROTHIAZIDE 12.5MG), QD ( 2 YEARS AGO)
     Route: 048
  4. GALVUS MET [Suspect]
     Active Substance: METFORMIN HYDROCHLORIDE\VILDAGLIPTIN
     Indication: DIABETES MELLITUS
     Dosage: 1 DF, QD (METFORMIN 850MG, VILDAGLIPTIN 50MG) ( 2 YEARS AGO)
     Route: 048

REACTIONS (3)
  - Cataract [Recovering/Resolving]
  - Blood glucose increased [Recovered/Resolved]
  - Wrong technique in product usage process [Unknown]
